FAERS Safety Report 9991860 (Version 1)
Quarter: 2014Q1

REPORT INFORMATION
  Report Type: Spontaneous
  Country: BR (occurrence: BR)
  Receive Date: 20140310
  Receipt Date: 20140310
  Transmission Date: 20141002
  Serious: Yes (Other)
  Sender: FDA-Public Use
  Company Number: BR-ELI_LILLY_AND_COMPANY-BR201402008859

PATIENT
  Sex: Female

DRUGS (5)
  1. CYMBALTA [Suspect]
     Indication: URINARY TRACT DISORDER
     Dosage: 60 MG, QD
     Route: 048
  2. CYMBALTA [Suspect]
     Indication: PAIN
  3. LYRICA [Concomitant]
     Indication: PAIN
     Dosage: UNK, BID
     Route: 065
  4. METFORMINA                         /00082701/ [Concomitant]
     Indication: BLOOD GLUCOSE ABNORMAL
     Dosage: 1500 MG, EACH EVENING
     Route: 065
  5. LOSARTAN [Concomitant]
     Indication: HYPERTENSION
     Dosage: 50 MG, EACH MORNING
     Route: 065

REACTIONS (5)
  - Spinal cord injury cervical [Unknown]
  - Fall [Unknown]
  - Malaise [Unknown]
  - Drug dose omission [Unknown]
  - Dizziness [Not Recovered/Not Resolved]
